FAERS Safety Report 5455710-4 (Version None)
Quarter: 2007Q3

REPORT INFORMATION
  Report Type: 
  Country: None (occurrence: None)
  Receive Date: 20070918
  Receipt Date: 20070913
  Transmission Date: 20080115
  Serious: Yes (Other)
  Sender: FDA-Public Use
  Company Number: HQWYE644415JUN07

PATIENT
  Sex: Female
  Weight: 56.75 kg

DRUGS (4)
  1. EFFEXOR XR [Suspect]
     Indication: ANXIETY
     Route: 048
     Dates: start: 20060901
  2. RISPERIDONE [Concomitant]
     Indication: INSOMNIA
     Dosage: 0.5 MG; HS
     Route: 048
  3. LEVOTHYROXINE SODIUM [Concomitant]
     Indication: HYPOTHYROIDISM
     Dosage: 100 MCG DAILY
     Route: 048
  4. BUSPIRONE HCL [Concomitant]
     Indication: ANXIETY
     Route: 048

REACTIONS (3)
  - AMNESIA [None]
  - HOT FLUSH [None]
  - UNEVALUABLE EVENT [None]
